FAERS Safety Report 8292020-4 (Version None)
Quarter: 2012Q2

REPORT INFORMATION
  Report Type: 
  Country: None (occurrence: None)
  Receive Date: 20120417
  Receipt Date: 20120412
  Transmission Date: 20120825
  Serious: Yes (Other)
  Sender: FDA-Public Use
  Company Number: US-TEVA-328749USA

PATIENT
  Sex: Female

DRUGS (1)
  1. PROAIR HFA [Suspect]
     Indication: ASTHMA
     Route: 055

REACTIONS (3)
  - DRUG EFFECT DECREASED [None]
  - DYSPNOEA [None]
  - DRY MOUTH [None]
